FAERS Safety Report 22934475 (Version 2)
Quarter: 2024Q3

REPORT INFORMATION
  Report Type: Spontaneous
  Country: US (occurrence: None)
  Receive Date: 20230912
  Receipt Date: 20240906
  Transmission Date: 20241017
  Serious: No
  Sender: DOMPE FARMACEUTICI
  Company Number: US-FARMAPROD-202207-1340

PATIENT
  Age: 73 Year
  Sex: Female

DRUGS (19)
  1. OXERVATE [Suspect]
     Active Substance: CENEGERMIN-BKBJ
     Indication: Neurotrophic keratopathy
     Route: 047
     Dates: start: 20220717, end: 20220912
  2. OXERVATE [Suspect]
     Active Substance: CENEGERMIN-BKBJ
     Route: 047
     Dates: start: 20231119
  3. OXERVATE [Suspect]
     Active Substance: CENEGERMIN-BKBJ
  4. ARTIFICIAL TEARS [Concomitant]
     Dosage: 0.1%-0.3%
  5. ARTIFICIAL EYE LUBRICANT [Concomitant]
  6. TRIAMCINOLONE ACETONIDE [Concomitant]
     Active Substance: TRIAMCINOLONE ACETONIDE
  7. TRETINOIN [Concomitant]
     Active Substance: TRETINOIN
  8. LISINOPRIL [Concomitant]
     Active Substance: LISINOPRIL
  9. IPRATROPIUM BROMIDE [Concomitant]
     Active Substance: IPRATROPIUM BROMIDE\IPRATROPIUM BROMIDE ANHYDROUS
  10. GABAPENTIN [Concomitant]
     Active Substance: GABAPENTIN
  11. AMLODIPINE BESYLATE [Concomitant]
     Active Substance: AMLODIPINE BESYLATE
  12. ZIOPTAN [Concomitant]
     Active Substance: TAFLUPROST
  13. SYNTHROID [Concomitant]
     Active Substance: LEVOTHYROXINE SODIUM
  14. ROSUVASTATIN CALCIUM [Concomitant]
     Active Substance: ROSUVASTATIN CALCIUM
  15. MONTELUKAST SODIUM [Concomitant]
     Active Substance: MONTELUKAST\MONTELUKAST SODIUM
  16. METFORMIN HYDROCHLORIDE [Concomitant]
     Active Substance: METFORMIN HYDROCHLORIDE
  17. ESTRACE [Concomitant]
     Active Substance: ESTRADIOL
  18. FENOFIBRATE [Concomitant]
     Active Substance: FENOFIBRATE
  19. XIIDRA [Concomitant]
     Active Substance: LIFITEGRAST

REACTIONS (4)
  - Periorbital pain [Unknown]
  - Ocular discomfort [Unknown]
  - Rhinorrhoea [Unknown]
  - Eye pain [Not Recovered/Not Resolved]

NARRATIVE: CASE EVENT DATE: 20220717
